FAERS Safety Report 4515769-5 (Version None)
Quarter: 2004Q4

REPORT INFORMATION
  Report Type: 
  Country: None (occurrence: None)
  Receive Date: 20040930
  Receipt Date: 20040702
  Transmission Date: 20050328
  Serious: No
  Sender: FDA-Public Use
  Company Number: USA-2004-0015857

PATIENT
  Sex: Female

DRUGS (1)
  1. SPECTRACEF [Suspect]
     Dosage: MG, ORAL
     Route: 048

REACTIONS (1)
  - URTICARIA [None]
